FAERS Safety Report 26162249 (Version 1)
Quarter: 2025Q4

REPORT INFORMATION
  Report Type: Spontaneous
  Country: US (occurrence: US)
  Receive Date: 20251216
  Receipt Date: 20251216
  Transmission Date: 20260118
  Serious: Yes (Hospitalization)
  Sender: AMGEN
  Company Number: US-AMGEN-USASP2025244512

PATIENT
  Age: 33 Year
  Sex: Female

DRUGS (7)
  1. BEVACIZUMAB [Suspect]
     Active Substance: BEVACIZUMAB
     Indication: Arteriovenous malformation
     Dosage: UNK
     Route: 065
  2. TREPROSTINIL [Concomitant]
     Active Substance: TREPROSTINIL
     Indication: Pulmonary arterial hypertension
     Route: 058
  3. MACITENTAN [Concomitant]
     Active Substance: MACITENTAN
     Indication: Pulmonary arterial hypertension
  4. FUROSEMIDE [Concomitant]
     Active Substance: FUROSEMIDE
     Indication: Pulmonary arterial hypertension
  5. SPIRONOLACTONE [Concomitant]
     Active Substance: SPIRONOLACTONE
     Indication: Pulmonary arterial hypertension
  6. FERUMOXIDES NON-STOICHIOMETRIC MAGNETITE [Concomitant]
     Active Substance: FERUMOXIDES NON-STOICHIOMETRIC MAGNETITE
     Indication: Anaemia
     Dosage: 1020 MILLIGRAM (1-2 TIMES PER WEEK)
     Route: 040
  7. FERUMOXIDES NON-STOICHIOMETRIC MAGNETITE [Concomitant]
     Active Substance: FERUMOXIDES NON-STOICHIOMETRIC MAGNETITE
     Dosage: 1020 MILLIGRAM (ONCE EVERY 7 MONTHS)
     Route: 040

REACTIONS (3)
  - Bronchial haemorrhage [Recovered/Resolved]
  - Drug effective for unapproved indication [Unknown]
  - Off label use [Unknown]
